FAERS Safety Report 5974951-0 (Version None)
Quarter: 2008Q4

REPORT INFORMATION
  Report Type: 
  Country: None (occurrence: None)
  Receive Date: 20081202
  Receipt Date: 20081127
  Transmission Date: 20090506
  Serious: Yes (Other)
  Sender: FDA-Public Use
  Company Number: AU-PFIZER INC-2008100940

PATIENT
  Sex: Female

DRUGS (1)
  1. CHAMPIX [Suspect]
     Dates: start: 20081101

REACTIONS (1)
  - ASTHMA [None]
